FAERS Safety Report 12649486 (Version 1)
Quarter: 2016Q3

REPORT INFORMATION
  Report Type: Report from Study
  Country: None (occurrence: US)
  Receive Date: 20160812
  Receipt Date: 20160812
  Transmission Date: 20161109
  Serious: Yes (Other)
  Sender: FDA-Public Use
  Company Number: US-GILEAD-2016-0226738

PATIENT
  Age: 48 Year
  Sex: Female

DRUGS (1)
  1. LEDIPASVIR/SOFOSBUVIR [Suspect]
     Active Substance: LEDIPASVIR\SOFOSBUVIR
     Indication: HEPATITIS C
     Dosage: 1 DF, UNK
     Route: 048
     Dates: start: 201607

REACTIONS (13)
  - Cellulitis [Unknown]
  - Hypersensitivity [Unknown]
  - Skin haemorrhage [Unknown]
  - Peripheral swelling [Unknown]
  - Asthenia [Unknown]
  - Unevaluable event [Unknown]
  - Rheumatoid arthritis [Unknown]
  - Skin lesion [Unknown]
  - Scar [Unknown]
  - Arthralgia [Unknown]
  - Nausea [Recovered/Resolved]
  - Gait disturbance [Unknown]
  - Fatigue [Recovered/Resolved]
